FAERS Safety Report 4472457-1 (Version None)
Quarter: 2004Q4

REPORT INFORMATION
  Report Type: 
  Country: None (occurrence: None)
  Receive Date: 20041007
  Receipt Date: 20040923
  Transmission Date: 20050328
  Serious: Yes (Other)
  Sender: FDA-Public Use
  Company Number: US-2004-027158

PATIENT
  Age: 43 Year
  Sex: Female
  Weight: 66.2 kg

DRUGS (8)
  1. YASMIN [Suspect]
     Indication: ORAL CONTRACEPTION
     Dosage: 1 TAB(S), 1X/DAY, ORAL
     Route: 048
     Dates: start: 20040201, end: 20040501
  2. IMURAN [Suspect]
     Indication: MYASTHENIA GRAVIS
     Dates: start: 19890101, end: 20040501
  3. MESTINON [Concomitant]
  4. TYLENOL [Concomitant]
  5. IMODIUM [Concomitant]
  6. MULTIVITAMINS (RETINOL, PANTHENOL) [Concomitant]
  7. FLAXSEED OIL (LINUM USITATISSIMUM SEED OIL) [Concomitant]
  8. FOLIC ACID [Concomitant]

REACTIONS (5)
  - ABDOMINAL PAIN [None]
  - ALANINE AMINOTRANSFERASE INCREASED [None]
  - ASPARTATE AMINOTRANSFERASE INCREASED [None]
  - DRUG TOXICITY [None]
  - HAEMANGIOMA OF LIVER [None]
